FAERS Safety Report 23596768 (Version 1)
Quarter: 2024Q1

REPORT INFORMATION
  Report Type: Spontaneous
  Country: RU (occurrence: RU)
  Receive Date: 20240305
  Receipt Date: 20240305
  Transmission Date: 20240409
  Serious: Yes (Other)
  Sender: FDA-Public Use
  Company Number: RU-PFIZER INC-202400054690

PATIENT
  Age: 39 Year
  Sex: Female

DRUGS (1)
  1. DOSTINEX [Suspect]
     Active Substance: CABERGOLINE
     Indication: Blood prolactin increased
     Dosage: 0.25 DF, 2X/WEEK (A QUARTER OF A TABLET TWICE PER WEEK)
     Dates: start: 20240205, end: 20240229

REACTIONS (2)
  - Intermenstrual bleeding [Unknown]
  - Abdominal pain [Unknown]

NARRATIVE: CASE EVENT DATE: 20240222
